FAERS Safety Report 18472278 (Version 1)
Quarter: 2020Q4

REPORT INFORMATION
  Report Type: Spontaneous
  Country: US (occurrence: US)
  Receive Date: 20201104
  Receipt Date: 20201104
  Transmission Date: 20210114
  Serious: No
  Sender: FDA-Public Use
  Company Number: None

PATIENT
  Age: 40 Year
  Sex: Male
  Weight: 101.15 kg

DRUGS (1)
  1. BUPRENORPHINE/NALOXONE (BUPRENORPHINE 8MG/NALOXONE 2MG FILM, SUBLINGUA [Suspect]
     Active Substance: BUPRENORPHINE HYDROCHLORIDE\NALOXONE HYDROCHLORIDE
     Indication: DRUG USE DISORDER
     Dosage: ?          OTHER FREQUENCY:AM;?
     Route: 060
     Dates: start: 20191230

REACTIONS (2)
  - Therapeutic product effect decreased [None]
  - Rash [None]

NARRATIVE: CASE EVENT DATE: 20191230
